FAERS Safety Report 7359786-9 (Version None)
Quarter: 2011Q1

REPORT INFORMATION
  Report Type: 
  Country: None (occurrence: None)
  Receive Date: 20110317
  Receipt Date: 20101227
  Transmission Date: 20110831
  Serious: Yes (Hospitalization, Other)
  Sender: FDA-Public Use
  Company Number: US-BAYER-201025198NA

PATIENT
  Sex: Female
  Weight: 63 kg

DRUGS (4)
  1. CORGARD [Concomitant]
     Dosage: 10 MG, QD
     Route: 048
     Dates: start: 20050603
  2. LIPITOR [Concomitant]
     Dosage: UNK
     Route: 048
     Dates: start: 20050603
  3. YASMIN [Suspect]
     Indication: DYSFUNCTIONAL UTERINE BLEEDING
     Route: 048
     Dates: start: 20051001, end: 20060103
  4. ADVIL LIQUI-GELS [Concomitant]

REACTIONS (2)
  - PULMONARY EMBOLISM [None]
  - PAIN [None]
